FAERS Safety Report 13817252 (Version 5)
Quarter: 2018Q2

REPORT INFORMATION
  Report Type: Report from Study
  Country: US (occurrence: US)
  Receive Date: 20170731
  Receipt Date: 20180509
  Transmission Date: 20180711
  Serious: Yes (Hospitalization)
  Sender: FDA-Public Use
  Company Number: US-MYLANLABS-2017M1046362

PATIENT
  Age: 22 Year
  Sex: Male
  Weight: 102 kg

DRUGS (20)
  1. RUXOLITINIB [Suspect]
     Active Substance: RUXOLITINIB
     Indication: ACUTE LYMPHOCYTIC LEUKAEMIA
     Dosage: 75 MG, BID
     Route: 048
     Dates: start: 20170220, end: 20171029
  2. METHOTREXATE. [Suspect]
     Active Substance: METHOTREXATE
     Dosage: 1115 MG, UNK, HD
     Route: 042
     Dates: start: 20170427, end: 20170609
  3. METHOTREXATE. [Suspect]
     Active Substance: METHOTREXATE
     Dosage: 225 MG, Q10 D
     Route: 042
     Dates: start: 20170427, end: 20171023
  4. VINCRISTINE [Suspect]
     Active Substance: VINCRISTINE
     Indication: LEUKAEMIA
     Dosage: 2 MG, UNK
     Route: 042
     Dates: start: 20170427, end: 20170608
  5. VINCRISTINE [Suspect]
     Active Substance: VINCRISTINE
     Indication: ACUTE LYMPHOCYTIC LEUKAEMIA
     Dosage: 2 MG, Q10 D
     Route: 042
     Dates: start: 20170104, end: 20171023
  6. ASPARAGINASE [Suspect]
     Active Substance: ASPARAGINASE
     Indication: ACUTE LYMPHOCYTIC LEUKAEMIA
     Dosage: 56 K,UNK
     Route: 065
     Dates: start: 20170717, end: 20171011
  7. MERCAPTOPURINE. [Suspect]
     Active Substance: MERCAPTOPURINE
     Indication: LEUKAEMIA
     Dosage: 75 MG, UNK
     Route: 048
     Dates: start: 20170213, end: 20170611
  8. MERCAPTOPURINE. [Suspect]
     Active Substance: MERCAPTOPURINE
     Indication: ACUTE LYMPHOCYTIC LEUKAEMIA
  9. RUXOLITINIB [Suspect]
     Active Substance: RUXOLITINIB
     Indication: LEUKAEMIA
     Dosage: 40 MG, BID
     Route: 065
     Dates: start: 20170220, end: 20170608
  10. METHOTREXATE. [Suspect]
     Active Substance: METHOTREXATE
     Indication: LEUKAEMIA
     Dosage: 15 MG, UNK
     Route: 037
     Dates: start: 20170427, end: 20170525
  11. LEUCOVORIN                         /00566701/ [Suspect]
     Active Substance: LEUCOVORIN
     Indication: LEUKAEMIA
     Dosage: 35 MG, UNK
     Route: 042
     Dates: start: 20170430, end: 20170612
  12. LEUCOVORIN                         /00566701/ [Suspect]
     Active Substance: LEUCOVORIN
     Indication: ACUTE LYMPHOCYTIC LEUKAEMIA
  13. RUXOLITINIB [Suspect]
     Active Substance: RUXOLITINIB
     Dosage: UNK
  14. METHOTREXATE. [Suspect]
     Active Substance: METHOTREXATE
     Indication: ACUTE LYMPHOCYTIC LEUKAEMIA
     Dosage: PER INTERIM MAINTANANCE
  15. LORAZEPAM. [Concomitant]
     Active Substance: LORAZEPAM
     Indication: PRODUCT USED FOR UNKNOWN INDICATION
     Dosage: UNK
  16. RUXOLITINIB [Suspect]
     Active Substance: RUXOLITINIB
     Dosage: UNK, AM
     Route: 048
     Dates: start: 20171030, end: 20171030
  17. ZOLOFT [Concomitant]
     Active Substance: SERTRALINE HYDROCHLORIDE
     Indication: PRODUCT USED FOR UNKNOWN INDICATION
     Dosage: UNK
  18. CLINDAMYCIN. [Concomitant]
     Active Substance: CLINDAMYCIN
     Indication: PRODUCT USED FOR UNKNOWN INDICATION
     Dosage: UNK
  19. METHOTREXATE. [Suspect]
     Active Substance: METHOTREXATE
     Dosage: 15 MG, UNK
     Route: 037
     Dates: start: 20170112, end: 20171009
  20. PENTAMIDINE [Concomitant]
     Active Substance: PENTAMIDINE
     Indication: PRODUCT USED FOR UNKNOWN INDICATION
     Dosage: UNK

REACTIONS (1)
  - Stomatitis [Recovered/Resolved]

NARRATIVE: CASE EVENT DATE: 20170615
